FAERS Safety Report 24107913 (Version 2)
Quarter: 2024Q3

REPORT INFORMATION
  Report Type: Report from Study
  Country: GB (occurrence: GB)
  Receive Date: 20240718
  Receipt Date: 20240731
  Transmission Date: 20241017
  Serious: Yes (Hospitalization)
  Sender: ABBVIE
  Company Number: GB-ABBVIE-5833139

PATIENT
  Age: 57 Year
  Sex: Female

DRUGS (1)
  1. SKYRIZI [Suspect]
     Active Substance: RISANKIZUMAB-RZAA
     Indication: Crohn^s disease
     Dosage: FORM STRENGTH 360 MILLIGRAM?DRUG STOP DATE: 2024
     Route: 058
     Dates: start: 20240415

REACTIONS (5)
  - Intestinal obstruction [Recovered/Resolved]
  - Illness [Unknown]
  - Gastrointestinal infection [Unknown]
  - COVID-19 [Unknown]
  - Stoma obstruction [Unknown]

NARRATIVE: CASE EVENT DATE: 20240101
